FAERS Safety Report 9031653 (Version 1)
Quarter: 2013Q1

REPORT INFORMATION
  Report Type: Spontaneous
  Country: US (occurrence: US)
  Receive Date: 20130124
  Receipt Date: 20130124
  Transmission Date: 20140127
  Serious: Yes (Hospitalization)
  Sender: FDA-Public Use
  Company Number: US-ELI_LILLY_AND_COMPANY-US201301007558

PATIENT
  Sex: Female

DRUGS (3)
  1. ADCIRCA [Suspect]
     Dosage: UNK
     Route: 065
  2. LETAIRIS [Concomitant]
     Indication: PULMONARY ARTERIAL HYPERTENSION
     Dosage: 5 MG, QD
     Route: 048
     Dates: start: 20120329
  3. EPOPROSTENOL [Concomitant]

REACTIONS (2)
  - Local swelling [Unknown]
  - Blood potassium decreased [Unknown]
